FAERS Safety Report 8795843 (Version 2)
Quarter: 2012Q4

REPORT INFORMATION
  Report Type: 
  Country: US (occurrence: US)
  Receive Date: 20120920
  Receipt Date: 20121017
  Transmission Date: 20130627
  Serious: Yes (Other)
  Sender: FDA-Public Use
  Company Number: US-CELGENEUS-163-21880-12091475

PATIENT
  Sex: Female

DRUGS (8)
  1. REVLIMID [Suspect]
     Indication: MULTIPLE MYELOMA
     Dosage: 25 Milligram
     Route: 048
     Dates: start: 200811
  2. REVLIMID [Suspect]
     Dosage: 10 Milligram
     Route: 048
     Dates: start: 201012
  3. REVLIMID [Suspect]
     Dosage: 5 Milligram
     Route: 048
     Dates: start: 201101
  4. EFFEXOR XR [Concomitant]
     Indication: DRUG USE FOR UNKNOWN INDICATION
     Route: 065
  5. PREMARIN [Concomitant]
     Indication: DRUG USE FOR UNKNOWN INDICATION
     Route: 065
  6. DEXAMETHASONE [Concomitant]
     Indication: DRUG USE FOR UNKNOWN INDICATION
     Route: 065
  7. WARFARIN [Concomitant]
     Indication: DRUG USE FOR UNKNOWN INDICATION
     Route: 065
  8. METOPROLOL [Concomitant]
     Indication: DRUG USE FOR UNKNOWN INDICATION
     Route: 065

REACTIONS (2)
  - Haemorrhage [Unknown]
  - Infection [Unknown]
